FAERS Safety Report 10150181 (Version 2)
Quarter: 2014Q4

REPORT INFORMATION
  Report Type: Spontaneous
  Country: BR (occurrence: BR)
  Receive Date: 20140502
  Receipt Date: 20141024
  Transmission Date: 20150528
  Serious: Yes (Other)
  Sender: FDA-Public Use
  Company Number: BR-JNJFOC-20140417152

PATIENT
  Sex: Female
  Weight: 57 kg

DRUGS (10)
  1. METFORMIN [Concomitant]
     Active Substance: METFORMIN HYDROCHLORIDE
     Indication: DIABETES MELLITUS
     Route: 065
  2. SOMALIUM [Concomitant]
     Indication: FEELING ABNORMAL
     Route: 065
     Dates: start: 2009
  3. AMPLICTIL [Suspect]
     Active Substance: CHLORPROMAZINE HYDROCHLORIDE
     Indication: FEAR
     Route: 065
     Dates: start: 1984
  4. HALDOL [Suspect]
     Active Substance: HALOPERIDOL
     Indication: FEAR
     Route: 065
     Dates: start: 1984
  5. HALDOL [Suspect]
     Active Substance: HALOPERIDOL
     Indication: FEELING ABNORMAL
     Route: 065
     Dates: start: 1984
  6. SOMALIUM [Concomitant]
     Indication: SLEEP DISORDER THERAPY
     Route: 065
     Dates: start: 2009
  7. HALDOL [Suspect]
     Active Substance: HALOPERIDOL
     Indication: SLEEP DISORDER THERAPY
     Route: 065
     Dates: start: 1984
  8. AMPLICTIL [Suspect]
     Active Substance: CHLORPROMAZINE HYDROCHLORIDE
     Indication: FEELING ABNORMAL
     Route: 065
     Dates: start: 1984
  9. AMPLICTIL [Suspect]
     Active Substance: CHLORPROMAZINE HYDROCHLORIDE
     Indication: SLEEP DISORDER THERAPY
     Route: 065
     Dates: start: 1984
  10. SOMALIUM [Concomitant]
     Indication: FEAR
     Route: 065
     Dates: start: 2009

REACTIONS (7)
  - Insomnia [Recovered/Resolved]
  - Product use issue [Unknown]
  - Drug prescribing error [Unknown]
  - Intentional product misuse [Unknown]
  - Drug ineffective [Unknown]
  - Arrhythmia [Not Recovered/Not Resolved]
  - Diabetes mellitus [Not Recovered/Not Resolved]

NARRATIVE: CASE EVENT DATE: 1984
